APPROVED DRUG PRODUCT: CILOSTAZOL
Active Ingredient: CILOSTAZOL
Strength: 100MG
Dosage Form/Route: TABLET;ORAL
Application: A077022 | Product #001 | TE Code: AB
Applicant: EPIC PHARMA LLC
Approved: Nov 23, 2004 | RLD: No | RS: No | Type: RX